FAERS Safety Report 8603581-7 (Version None)
Quarter: 2012Q3

REPORT INFORMATION
  Report Type: 
  Country: None (occurrence: None)
  Receive Date: 20120817
  Receipt Date: 20120813
  Transmission Date: 20120928
  Serious: Yes (Hospitalization)
  Sender: FDA-Public Use
  Company Number: US-AMGEN-US311277

PATIENT
  Age: 74 Year
  Sex: Female

DRUGS (4)
  1. VECTIBIX [Suspect]
     Indication: COLORECTAL CANCER
     Dosage: 651 MG, UNK
     Route: 042
     Dates: start: 20080922
  2. COUMADIN [Concomitant]
     Dosage: UNK
     Dates: end: 20080923
  3. CISPLATIN [Concomitant]
  4. DOCETAXEL [Concomitant]

REACTIONS (2)
  - INTERNATIONAL NORMALISED RATIO INCREASED [None]
  - MUSCULOSKELETAL CHEST PAIN [None]
